FAERS Safety Report 4375020-6 (Version None)
Quarter: 2004Q2

REPORT INFORMATION
  Report Type: 
  Country: None (occurrence: None)
  Receive Date: 20040608
  Receipt Date: 20040112
  Transmission Date: 20050107
  Serious: Yes (Other)
  Sender: FDA-Public Use
  Company Number: 10046924-PS140350-1

PATIENT

DRUGS (2)
  1. HEPARIN SODIUM 1,000 UNITS IN SODIUM CHLORIDE 0.9% [Suspect]
     Dosage: VIA ARTERIAL FLUSH LINE
     Dates: start: 20040112
  2. HEPARIN [Concomitant]

REACTIONS (1)
  - HAEMORRHAGE [None]
